FAERS Safety Report 7444962-7 (Version None)
Quarter: 2011Q2

REPORT INFORMATION
  Report Type: 
  Country: None (occurrence: None)
  Receive Date: 20110429
  Receipt Date: 20110426
  Transmission Date: 20111010
  Serious: Yes (Death, Hospitalization, Other)
  Sender: FDA-Public Use
  Company Number: PHHY2010GB03892

PATIENT
  Sex: Male

DRUGS (1)
  1. CLOZARIL [Suspect]
     Indication: SCHIZOPHRENIA
     Dosage: UNK MG, UNK
     Dates: start: 20070110, end: 20110401

REACTIONS (6)
  - PYREXIA [None]
  - NON-HODGKIN'S LYMPHOMA [None]
  - MALAISE [None]
  - METASTASIS [None]
  - SOMNOLENCE [None]
  - LOWER RESPIRATORY TRACT INFECTION [None]
